FAERS Safety Report 11947839 (Version 1)
Quarter: 2016Q1

REPORT INFORMATION
  Report Type: Spontaneous
  Country: US (occurrence: US)
  Receive Date: 20160125
  Receipt Date: 20160125
  Transmission Date: 20160526
  Serious: Yes (Other)
  Sender: FDA-Public Use
  Company Number: US-JNJFOC-20160111695

PATIENT
  Sex: Female
  Weight: 47.63 kg

DRUGS (2)
  1. REMICADE [Suspect]
     Active Substance: INFLIXIMAB
     Indication: COLITIS ULCERATIVE
     Route: 042
     Dates: end: 2013
  2. MARIJUANA [Suspect]
     Active Substance: CANNABIS SATIVA SUBSP. INDICA TOP
     Indication: PRODUCT USED FOR UNKNOWN INDICATION
     Route: 065

REACTIONS (9)
  - Incorrect dose administered [Unknown]
  - Finger amputation [Recovered/Resolved]
  - Migraine [Not Recovered/Not Resolved]
  - Adverse event [Not Recovered/Not Resolved]
  - Staphylococcal infection [Recovered/Resolved]
  - Headache [Unknown]
  - Ovarian cyst [Not Recovered/Not Resolved]
  - Scoliosis [Not Recovered/Not Resolved]
  - Weight increased [Not Recovered/Not Resolved]

NARRATIVE: CASE EVENT DATE: 2013
